FAERS Safety Report 5043108-2 (Version None)
Quarter: 2006Q3

REPORT INFORMATION
  Report Type: 
  Country: None (occurrence: None)
  Receive Date: 20060705
  Receipt Date: 20060628
  Transmission Date: 20061208
  Serious: Yes (Death, Hospitalization)
  Sender: FDA-Public Use
  Company Number: PHBS2006PL09660

PATIENT
  Age: 64 Year
  Sex: Female

DRUGS (4)
  1. IMATINIB [Suspect]
     Indication: CHRONIC MYELOID LEUKAEMIA
     Dosage: 600 MG/D
     Route: 048
     Dates: start: 20040315
  2. IMATINIB [Suspect]
     Dosage: 300 MG/D
     Route: 048
  3. ALLOPURINOL [Concomitant]
     Dosage: 100 MG/D
  4. FUROSEMIDE [Concomitant]
     Dosage: 40 MG EVERY OTHER DAY

REACTIONS (5)
  - BONE MARROW FAILURE [None]
  - MUCOSAL HAEMORRHAGE [None]
  - PLATELET COUNT DECREASED [None]
  - SEPTIC SHOCK [None]
  - WHITE BLOOD CELL COUNT DECREASED [None]
